FAERS Safety Report 4877490-3 (Version None)
Quarter: 2006Q1

REPORT INFORMATION
  Report Type: 
  Country: None (occurrence: None)
  Receive Date: 20060109
  Receipt Date: 20051226
  Transmission Date: 20060701
  Serious: Yes (Hospitalization)
  Sender: FDA-Public Use
  Company Number: 2005149657

PATIENT
  Age: 56 Year
  Sex: Female
  Weight: 51.6 kg

DRUGS (6)
  1. IRINOTECAN HCL [Suspect]
     Indication: OVARIAN CANCER
     Dosage: 80 MG (INTERMITTENT), INTRAVENOUS
     Route: 042
     Dates: start: 20050225, end: 20050419
  2. DOCETAXEL (DOCETAXEL) [Suspect]
     Indication: OVARIAN CANCER
     Dosage: INTRAVENOUS, 160 MG (80 MG, TWICE DAILY THREE TIMES A WEEK); INTRAVENOUS
     Route: 042
     Dates: start: 20040608, end: 20040907
  3. DOCETAXEL (DOCETAXEL) [Suspect]
     Indication: OVARIAN CANCER
     Dosage: INTRAVENOUS, 160 MG (80 MG, TWICE DAILY THREE TIMES A WEEK); INTRAVENOUS
     Route: 042
     Dates: start: 20050304, end: 20050419
  4. WARFARIN [Concomitant]
  5. CEFOTIAM HYDROCHLORIDE [Concomitant]
  6. NEU-UP (NARTOGRASTIM) [Concomitant]

REACTIONS (11)
  - ACUTE RESPIRATORY DISTRESS SYNDROME [None]
  - CHILLS [None]
  - EOSINOPHIL COUNT INCREASED [None]
  - HYPERSENSITIVITY [None]
  - INJECTION SITE HYPERSENSITIVITY [None]
  - INTERSTITIAL LUNG DISEASE [None]
  - LYMPHOCYTE COUNT INCREASED [None]
  - OVARIAN CANCER [None]
  - PYREXIA [None]
  - RECURRENT CANCER [None]
  - RESPIRATORY FAILURE [None]
